FAERS Safety Report 5415356-0 (Version None)
Quarter: 2007Q3

REPORT INFORMATION
  Report Type: 
  Country: None (occurrence: None)
  Receive Date: 20070815
  Receipt Date: 20070806
  Transmission Date: 20080115
  Serious: Yes (Hospitalization, Disabling, Other)
  Sender: FDA-Public Use
  Company Number: BR-AVENTIS-200717360GDDC

PATIENT
  Age: 73 Year
  Sex: Male
  Weight: 76 kg

DRUGS (16)
  1. LANTUS [Suspect]
     Route: 058
     Dates: start: 20060101
  2. LANTUS [Suspect]
     Route: 058
     Dates: start: 20070701
  3. OPTIPEN (INSULIN PUMP) [Suspect]
  4. NOVORAPID [Concomitant]
     Dates: start: 20060101
  5. DIVELOL [Concomitant]
     Route: 048
     Dates: start: 19970101
  6. DIOVAN [Concomitant]
     Route: 048
     Dates: start: 19970101
  7. MONOCORDIL [Concomitant]
     Route: 048
     Dates: start: 19970101
  8. APRESOLINA [Concomitant]
     Route: 048
     Dates: start: 19970101
  9. DIGOXIN [Concomitant]
     Route: 048
     Dates: start: 19970101
  10. LASIX [Concomitant]
     Indication: BLOOD PRESSURE
     Dosage: DOSE QUANTITY: 2
     Route: 048
     Dates: start: 19970101
  11. MODURETIC 5-50 [Concomitant]
     Route: 048
     Dates: start: 19970101
  12. ANCORON [Concomitant]
     Route: 048
     Dates: start: 19970101
  13. PANTOPRAZOLE SODIUM [Concomitant]
     Route: 048
     Dates: start: 19970101
  14. PURAN T4 [Concomitant]
     Indication: THYROID DISORDER
     Dosage: DOSE QUANTITY: 1
     Route: 048
     Dates: start: 19920101
  15. CITTA [Concomitant]
     Indication: SEDATIVE THERAPY
     Route: 048
     Dates: start: 20030101, end: 20070704
  16. CLONAZEPAM [Concomitant]
     Route: 048
     Dates: start: 19970101

REACTIONS (11)
  - ACUTE PULMONARY OEDEMA [None]
  - AMNESIA [None]
  - ASTHENIA [None]
  - DRUG INEFFECTIVE [None]
  - HYPERGLYCAEMIA [None]
  - HYPOGLYCAEMIC UNCONSCIOUSNESS [None]
  - HYPOKINESIA [None]
  - SOMNOLENCE [None]
  - STARING [None]
  - SYNCOPE [None]
  - TREMOR [None]
